FAERS Safety Report 12264878 (Version 1)
Quarter: 2016Q2

REPORT INFORMATION
  Report Type: Spontaneous
  Country: US (occurrence: US)
  Receive Date: 20160413
  Receipt Date: 20160413
  Transmission Date: 20160815
  Serious: No
  Sender: FDA-Public Use
  Company Number: US-JNJFOC-20160306286

PATIENT
  Age: 81 Year
  Sex: Female
  Weight: 117.94 kg

DRUGS (15)
  1. INSULIN [Concomitant]
     Active Substance: INSULIN NOS
     Indication: DIABETES MELLITUS
     Dosage: 33 UNITS EVENING, 3-4 YEARS
     Route: 065
  2. GLIPIZIDE. [Concomitant]
     Active Substance: GLIPIZIDE
     Indication: DIABETES MELLITUS
     Route: 065
  3. METOPROLOL. [Concomitant]
     Active Substance: METOPROLOL
     Indication: DIABETES MELLITUS
     Dosage: 1/2, 2 X PER DAY, 15 YEARS
     Route: 065
  4. VIT B 12 [Concomitant]
     Indication: NUTRITIONAL SUPPLEMENTATION
     Dosage: FOR 5 YEARS
     Route: 065
  5. OCUVITE [Concomitant]
     Active Substance: VITAMINS
     Indication: EYE DISORDER
     Dosage: FOR 9 YEARS
     Route: 065
  6. TYLENOL EXTRA STRENGTH [Suspect]
     Active Substance: ACETAMINOPHEN
     Indication: EAR PAIN
     Dosage: 2X EVERY 6 HOURS
     Route: 048
     Dates: start: 20160303, end: 20160303
  7. COZAAR [Concomitant]
     Active Substance: LOSARTAN POTASSIUM
     Indication: HYPERTENSION
     Dosage: FOR 9 YEARS
     Route: 065
  8. BABY ASPIRIN [Concomitant]
     Active Substance: ASPIRIN
     Indication: CEREBROVASCULAR ACCIDENT PROPHYLAXIS
     Dosage: FOR 20 YEARS
     Route: 065
  9. MUCINEX D [Concomitant]
     Active Substance: GUAIFENESIN\PSEUDOEPHEDRINE HYDROCHLORIDE
     Indication: VIRAL INFECTION
     Dosage: FOR 5 DAYS
     Route: 065
     Dates: start: 20160229
  10. TESSALON [Concomitant]
     Active Substance: BENZONATATE
     Indication: VIRAL INFECTION
     Dosage: FOR 5 DAYS
     Route: 065
     Dates: start: 20160229
  11. PRAVASTATIN [Concomitant]
     Active Substance: PRAVASTATIN\PRAVASTATIN SODIUM
     Indication: BLOOD CHOLESTEROL INCREASED
     Dosage: 2 YEARS
     Route: 065
  12. VITAMIN D [Concomitant]
     Active Substance: CHOLECALCIFEROL
     Indication: NUTRITIONAL SUPPLEMENTATION
     Dosage: FOR 1 YEAR
     Route: 065
  13. INSULIN [Concomitant]
     Active Substance: INSULIN NOS
     Indication: DIABETES MELLITUS
     Dosage: 33 UNITS MORNING, 3-4 YEARS
     Route: 065
  14. HYDROCHLOROTHIAZIDE. [Concomitant]
     Active Substance: HYDROCHLOROTHIAZIDE
     Indication: URINARY INCONTINENCE
     Dosage: FOR 20 YEARS
     Route: 065
  15. VIT B-6 [Concomitant]
     Indication: NUTRITIONAL SUPPLEMENTATION
     Dosage: FOR 6 MONTHS
     Route: 065

REACTIONS (3)
  - Drug ineffective for unapproved indication [Unknown]
  - Product use issue [Unknown]
  - Off label use [Unknown]
